FAERS Safety Report 15930591 (Version 1)
Quarter: 2019Q1

REPORT INFORMATION
  Report Type: Spontaneous
  Country: US (occurrence: US)
  Receive Date: 20190207
  Receipt Date: 20190207
  Transmission Date: 20190417
  Serious: No
  Sender: FDA-Public Use
  Company Number: US-AMGEN-USASP2019016869

PATIENT
  Sex: Female

DRUGS (3)
  1. PROLIA [Suspect]
     Active Substance: DENOSUMAB
     Indication: OSTEOPOROSIS POSTMENOPAUSAL
     Dosage: 60 MG, Q6MO
     Route: 065
     Dates: start: 20181112
  2. IMURAN [Concomitant]
     Active Substance: AZATHIOPRINE
  3. TOPROL XL [Concomitant]
     Active Substance: METOPROLOL SUCCINATE

REACTIONS (7)
  - Flushing [Unknown]
  - Paraesthesia [Unknown]
  - Rash erythematous [Not Recovered/Not Resolved]
  - Micturition urgency [Unknown]
  - Pain [Unknown]
  - Sensitive skin [Unknown]
  - Back pain [Unknown]

NARRATIVE: CASE EVENT DATE: 201811
